FAERS Safety Report 6562611-7 (Version None)
Quarter: 2010Q1

REPORT INFORMATION
  Report Type: 
  Country: None (occurrence: None)
  Receive Date: 20100130
  Receipt Date: 20091117
  Transmission Date: 20100710
  Serious: No
  Sender: FDA-Public Use
  Company Number: US-ABBOTT-09P-163-0610041-00

PATIENT
  Sex: Male
  Weight: 99.88 kg

DRUGS (2)
  1. HUMIRA [Suspect]
     Indication: PSORIASIS
     Route: 058
     Dates: start: 20081124, end: 20090105
  2. COZAAR [Concomitant]
     Indication: HYPERTENSION
     Dosage: UNKNOWN STRE 2 BID
     Route: 048

REACTIONS (1)
  - NEUTROPHIL COUNT DECREASED [None]
